FAERS Safety Report 9189517 (Version 1)
Quarter: 2013Q1

REPORT INFORMATION
  Report Type: Spontaneous
  Country: PL (occurrence: PL)
  Receive Date: 20130326
  Receipt Date: 20130326
  Transmission Date: 20140127
  Serious: No
  Sender: FDA-Public Use
  Company Number: PL-JNJFOC-20130308312

PATIENT
  Age: 64 Year
  Sex: Female

DRUGS (2)
  1. DUROGESIC [Suspect]
     Indication: PAIN MANAGEMENT
     Route: 062
     Dates: start: 20130304
  2. KETOCONAZOLE [Suspect]
     Indication: PRODUCT USED FOR UNKNOWN INDICATION
     Route: 065

REACTIONS (4)
  - Drug ineffective [Unknown]
  - Inappropriate schedule of drug administration [Unknown]
  - Vomiting [Unknown]
  - Nausea [Unknown]
